FAERS Safety Report 8291709-0 (Version None)
Quarter: 2012Q2

REPORT INFORMATION
  Report Type: 
  Country: None (occurrence: None)
  Receive Date: 20120417
  Receipt Date: 20110408
  Transmission Date: 20120825
  Serious: No
  Sender: FDA-Public Use
  Company Number: US-ASTRAZENECA-2011SE16457

PATIENT
  Age: 63 Year
  Sex: Female

DRUGS (6)
  1. OMEPRAZOLE [Suspect]
     Indication: GASTROOESOPHAGEAL REFLUX DISEASE
     Route: 048
  2. WELLBUTRIN [Concomitant]
  3. ZOCOR [Concomitant]
  4. LYRICA [Concomitant]
  5. CELEXA [Concomitant]
  6. NEXIUM [Suspect]
     Route: 048

REACTIONS (7)
  - REGURGITATION [None]
  - DRUG DOSE OMISSION [None]
  - GASTROOESOPHAGEAL REFLUX DISEASE [None]
  - DRUG INEFFECTIVE [None]
  - BACK DISORDER [None]
  - PAIN [None]
  - CHEST PAIN [None]
